FAERS Safety Report 8132788-0 (Version None)
Quarter: 2012Q1

REPORT INFORMATION
  Report Type: 
  Country: None (occurrence: None)
  Receive Date: 20120213
  Receipt Date: 20120206
  Transmission Date: 20120608
  Serious: Yes (Hospitalization, Other)
  Sender: FDA-Public Use
  Company Number: US-MERCK-1110USA00187

PATIENT
  Age: 76 Year
  Sex: Female
  Weight: 64 kg

DRUGS (3)
  1. FOSAMAX PLUS D [Suspect]
     Indication: OSTEOPOROSIS
     Route: 048
     Dates: start: 20010627, end: 20080807
  2. VITAMIN D (UNSPECIFIED) [Concomitant]
     Route: 065
  3. FOSAMAX [Suspect]
     Route: 048
     Dates: start: 20020501, end: 20080101

REACTIONS (52)
  - HYPERLIPIDAEMIA [None]
  - JOINT SWELLING [None]
  - BONE FRAGMENTATION [None]
  - DYSPHAGIA [None]
  - STASIS DERMATITIS [None]
  - SLEEP DISORDER [None]
  - INCREASED TENDENCY TO BRUISE [None]
  - ADVERSE EVENT [None]
  - CORONARY ARTERY DISEASE [None]
  - VIITH NERVE PARALYSIS [None]
  - CARPAL TUNNEL SYNDROME [None]
  - RADICULOPATHY [None]
  - LIP HAEMATOMA [None]
  - BACK DISORDER [None]
  - BLOOD PRESSURE INCREASED [None]
  - LIP AND/OR ORAL CAVITY CANCER [None]
  - HYPOACUSIS [None]
  - DIPLOPIA [None]
  - DENTAL CARIES [None]
  - INTERVERTEBRAL DISC DEGENERATION [None]
  - SCIATICA [None]
  - ORAL DISORDER [None]
  - LIGAMENT SPRAIN [None]
  - OCULAR HYPERAEMIA [None]
  - OSTEONECROSIS OF JAW [None]
  - SKIN CANCER [None]
  - WEIGHT DECREASED [None]
  - CARDIAC MURMUR [None]
  - ROTATOR CUFF SYNDROME [None]
  - OSTEOPENIA [None]
  - EDENTULOUS [None]
  - CERUMEN IMPACTION [None]
  - CAROTID ARTERY DISEASE [None]
  - DYSPNOEA [None]
  - ARTHRITIS [None]
  - LEUKOPLAKIA [None]
  - LIP AND/OR ORAL CAVITY CANCER STAGE 0 [None]
  - TOOTH DISORDER [None]
  - STRESS [None]
  - INTERVERTEBRAL DISC SPACE NARROWING [None]
  - ADRENAL MASS [None]
  - MALAISE [None]
  - PRESBYOESOPHAGUS [None]
  - OSTEORADIONECROSIS [None]
  - LUMBAR SPINAL STENOSIS [None]
  - CARDIAC DISORDER [None]
  - GALLBLADDER DISORDER [None]
  - ACCELERATED HYPERTENSION [None]
  - CHEST PAIN [None]
  - CATARACT [None]
  - BLOOD PRESSURE INADEQUATELY CONTROLLED [None]
  - BACK PAIN [None]
